FAERS Safety Report 10404503 (Version 1)
Quarter: 2014Q2

REPORT INFORMATION
  Report Type: Spontaneous
  Country: US (occurrence: None)
  Receive Date: 20140514
  Receipt Date: 20140514
  Transmission Date: 20141212
  Serious: Yes (Other)
  Sender: FDA-Public Use
  Company Number: 097471

PATIENT
  Age: 43 Year
  Sex: Male
  Weight: 67.1 kg

DRUGS (3)
  1. CIMZIA [Suspect]
     Indication: CROHN^S DISEASE
     Dosage: (400MG 1X/4 WEEKS?(??/??/2013 TO 09/??/2013)
     Dates: start: 2013
  2. PREDNISONE [Concomitant]
  3. ZOFRAN [Concomitant]

REACTIONS (4)
  - Crohn^s disease [None]
  - Dizziness [None]
  - Malaise [None]
  - Drug ineffective [None]
